FAERS Safety Report 9334693 (Version 2)
Quarter: 2014Q2

REPORT INFORMATION
  Report Type: Spontaneous
  Country: US (occurrence: US)
  Receive Date: 20130606
  Receipt Date: 20140519
  Transmission Date: 20141212
  Serious: No
  Sender: FDA-Public Use
  Company Number: US-AMGEN-USASP2013016098

PATIENT
  Age: 60 Year
  Sex: Female

DRUGS (5)
  1. PROLIA [Suspect]
     Indication: OSTEOPOROSIS POSTMENOPAUSAL
     Dosage: UNK
     Route: 065
  2. AVAPRO [Concomitant]
     Dosage: UNK
     Route: 065
  3. VYTORIN [Concomitant]
     Dosage: UNK
     Route: 065
  4. BYETTA [Concomitant]
     Dosage: UNK
     Route: 065
  5. VITAMIN D                          /00107901/ [Concomitant]
     Dosage: 10000 IU, QD
     Route: 065

REACTIONS (4)
  - Pain in jaw [Not Recovered/Not Resolved]
  - Body height decreased [Unknown]
  - Pain [Recovered/Resolved]
  - Sinusitis [Unknown]
